FAERS Safety Report 17686019 (Version 1)
Quarter: 2020Q2

REPORT INFORMATION
  Report Type: Spontaneous
  Country: CA (occurrence: CA)
  Receive Date: 20200420
  Receipt Date: 20200420
  Transmission Date: 20200714
  Serious: Yes (Other)
  Sender: FDA-Public Use
  Company Number: CA-SAMSUNG BIOEPIS-SB-2020-12841

PATIENT
  Age: 42 Year
  Sex: Female
  Weight: 54 kg

DRUGS (2)
  1. METHOTREXATE. [Concomitant]
     Active Substance: METHOTREXATE
     Indication: PRODUCT USED FOR UNKNOWN INDICATION
     Route: 058
  2. INFLIXIMAB [Suspect]
     Active Substance: INFLIXIMAB
     Indication: CROHN^S DISEASE
     Route: 042

REACTIONS (12)
  - Alopecia [Unknown]
  - Off label use [Unknown]
  - Erythema nodosum [Unknown]
  - Blood pressure fluctuation [Unknown]
  - Stress [Unknown]
  - Inappropriate schedule of product administration [Unknown]
  - Onychoclasis [Unknown]
  - Arthralgia [Unknown]
  - Uveitis [Unknown]
  - Fatigue [Unknown]
  - Nail disorder [Unknown]
  - Aphthous ulcer [Unknown]
